FAERS Safety Report 6398569-3 (Version None)
Quarter: 2009Q4

REPORT INFORMATION
  Report Type: 
  Country: None (occurrence: None)
  Receive Date: 20091013
  Receipt Date: 20091001
  Transmission Date: 20100525
  Serious: Yes (Life-Threatening, Hospitalization)
  Sender: FDA-Public Use
  Company Number: JP-PFIZER INC-2009170990

PATIENT
  Age: 47 Year

DRUGS (3)
  1. SUNITINIB MALATE [Suspect]
     Indication: RENAL CELL CARCINOMA
     Dosage: 50 MG, 1X/DAY
     Route: 048
     Dates: start: 20090114, end: 20090210
  2. DILTIAZEM [Concomitant]
     Dosage: UNK
     Route: 048
     Dates: start: 20081125, end: 20090210
  3. COVERSYL [Concomitant]
     Dosage: UNK
     Route: 048
     Dates: end: 20090210

REACTIONS (2)
  - HAEMOPTYSIS [None]
  - PNEUMONIA [None]
